FAERS Safety Report 8846933 (Version 1)
Quarter: 2012Q4

REPORT INFORMATION
  Report Type: 
  Country: FR (occurrence: FR)
  Receive Date: 20121018
  Receipt Date: 20121018
  Transmission Date: 20130627
  Serious: Yes (Hospitalization)
  Sender: FDA-Public Use
  Company Number: FR-PFIZER INC-2012254196

PATIENT
  Age: 89 Year
  Sex: Female

DRUGS (7)
  1. TAHOR [Suspect]
     Dosage: 10 mg, 1x/day
     Route: 048
     Dates: end: 20120905
  2. MIANSERIN HYDROCHLORIDE [Suspect]
     Dosage: 10 mg, 1x/day
     Route: 048
     Dates: start: 20120109, end: 20120905
  3. PARIET [Suspect]
     Dosage: 10 mg, 1x/day
     Route: 048
     Dates: start: 20120702, end: 20120905
  4. TEMESTA [Suspect]
     Dosage: 1.5 mg, 1x/day
     Route: 048
     Dates: start: 20120702
  5. MICARDIS [Concomitant]
     Dosage: 40 mg, 1x/day
     Route: 048
     Dates: end: 20120905
  6. UVEDOSE [Concomitant]
  7. IDEOS [Concomitant]

REACTIONS (1)
  - Convulsion [Recovered/Resolved]
